FAERS Safety Report 17095511 (Version 1)
Quarter: 2019Q4

REPORT INFORMATION
  Report Type: Report from Study
  Country: None (occurrence: US)
  Receive Date: 20191201
  Receipt Date: 20191201
  Transmission Date: 20200122
  Serious: Yes (Other)
  Sender: FDA-Public Use
  Company Number: US-ABBVIE-19K-163-3145427-00

PATIENT
  Age: 78 Year
  Sex: Female

DRUGS (1)
  1. IMBRUVICA [Suspect]
     Active Substance: IBRUTINIB
     Indication: ANGIOCENTRIC LYMPHOMA
     Dosage: 420 MG, QD
     Route: 048
     Dates: start: 2018

REACTIONS (4)
  - Fall [Unknown]
  - Arthritis [Unknown]
  - Procedural pain [Unknown]
  - Hip fracture [Unknown]

NARRATIVE: CASE EVENT DATE: 201812
